FAERS Safety Report 12989728 (Version 1)
Quarter: 2016Q4

REPORT INFORMATION
  Report Type: Spontaneous
  Country: US (occurrence: US)
  Receive Date: 20161201
  Receipt Date: 20161201
  Transmission Date: 20170207
  Serious: Yes (Hospitalization, Other)
  Sender: FDA-Public Use
  Company Number: US-ZYDUS-012793

PATIENT
  Age: 23 Year
  Sex: Male

DRUGS (3)
  1. PREDNISONE. [Concomitant]
     Active Substance: PREDNISONE
     Indication: PRODUCT USED FOR UNKNOWN INDICATION
     Route: 065
  2. AZATHIOPRINE. [Suspect]
     Active Substance: AZATHIOPRINE
     Indication: PRODUCT USED FOR UNKNOWN INDICATION
     Route: 065
  3. MESALAZINE [Concomitant]
     Active Substance: MESALAMINE
     Indication: PRODUCT USED FOR UNKNOWN INDICATION
     Route: 065

REACTIONS (12)
  - Abdominal pain upper [Recovering/Resolving]
  - Pancytopenia [Recovering/Resolving]
  - Splenomegaly [Recovering/Resolving]
  - Gastric disorder [Recovering/Resolving]
  - Disturbance in attention [Recovering/Resolving]
  - Gastritis erosive [Recovering/Resolving]
  - Transaminases increased [Recovering/Resolving]
  - Plasmablastic lymphoma [Recovering/Resolving]
  - Fatigue [Recovering/Resolving]
  - Cholestasis [Recovering/Resolving]
  - Neutropenia [Recovering/Resolving]
  - Pyrexia [Recovering/Resolving]
